FAERS Safety Report 6575506-X (Version None)
Quarter: 2010Q1

REPORT INFORMATION
  Report Type: 
  Country: None (occurrence: None)
  Receive Date: 20100209
  Receipt Date: 20091105
  Transmission Date: 20100710
  Serious: Yes (Life-Threatening, Hospitalization)
  Sender: FDA-Public Use
  Company Number: FR-JNJFOC-20091101794

PATIENT
  Age: 67 Year
  Sex: Male

DRUGS (16)
  1. DAKTARIN [Suspect]
     Route: 002
     Dates: start: 20090414, end: 20090424
  2. DAKTARIN [Suspect]
     Indication: ORAL FUNGAL INFECTION
     Route: 002
     Dates: start: 20090414, end: 20090424
  3. DAONIL [Interacting]
     Indication: TYPE 2 DIABETES MELLITUS
     Route: 048
     Dates: end: 20090424
  4. RISPERDAL [Concomitant]
     Route: 048
  5. DILTIAZEM [Concomitant]
     Route: 048
  6. HYPERIUM [Concomitant]
     Route: 048
  7. COZAAR [Concomitant]
     Route: 048
  8. ENDOTELON [Concomitant]
     Route: 048
  9. TANAKAN [Concomitant]
     Route: 048
  10. MEMANTINE HCL [Concomitant]
     Route: 048
  11. REMINYL [Concomitant]
     Route: 048
  12. EQUANIL [Concomitant]
     Route: 048
  13. STILNOX [Concomitant]
     Route: 048
     Dates: start: 20090201
  14. ZYLORIC [Concomitant]
     Route: 048
  15. BICARBONATE SODIUM [Concomitant]
     Route: 048
     Dates: start: 20090414
  16. EFFERALGAN [Concomitant]
     Route: 048
     Dates: start: 20090414

REACTIONS (4)
  - DRUG INTERACTION [None]
  - GENERAL PHYSICAL HEALTH DETERIORATION [None]
  - HYPOGLYCAEMIA [None]
  - MOTOR DYSFUNCTION [None]
